FAERS Safety Report 25582925 (Version 1)
Quarter: 2025Q3

REPORT INFORMATION
  Report Type: Spontaneous
  Country: GB (occurrence: GB)
  Receive Date: 20250720
  Receipt Date: 20250720
  Transmission Date: 20251020
  Serious: Yes (Disabling)
  Sender: BOEHRINGER INGELHEIM
  Company Number: GB-MHRA-TPP16661014C954903YC1752679404690

PATIENT
  Age: 74 Year
  Sex: Female
  Weight: 103 kg

DRUGS (11)
  1. EMPAGLIFLOZIN [Suspect]
     Active Substance: EMPAGLIFLOZIN
     Indication: Ill-defined disorder
     Dosage: FORM OF ADMIN:TPP YC - PLEASE RECLASSIFY
     Dates: start: 20250702, end: 20250716
  2. IBUPROFEN [Concomitant]
     Active Substance: IBUPROFEN
     Indication: Ill-defined disorder
  3. LEVOTHYROXINE [Concomitant]
     Active Substance: LEVOTHYROXINE
     Indication: Ill-defined disorder
     Dosage: FORM OF ADMIN:TPP YC - PLEASE RECLASSIFY
     Dates: start: 20220204
  4. TRELEGY ELLIPTA [Concomitant]
     Active Substance: FLUTICASONE FUROATE\UMECLIDINIUM BROMIDE\VILANTEROL TRIFENATATE
     Indication: Ill-defined disorder
     Dosage: INHALE 1 DOSE ?FORM OF ADMIN:TPP YC - PLEASE RECLASSIFY
     Dates: start: 20231016
  5. EZETIMIBE [Concomitant]
     Active Substance: EZETIMIBE
     Indication: Blood cholesterol increased
     Dosage: EACH NIGHT TO HELP REDUCE CHOLESTEROL?FORM OF ADMIN:TPP YC - PLEASE RECLASSIFY
     Dates: start: 20231108
  6. EASYHALER [Concomitant]
     Indication: Ill-defined disorder
     Dates: start: 20240408
  7. DOXAZOSIN [Concomitant]
     Active Substance: DOXAZOSIN MESYLATE
     Indication: Ill-defined disorder
     Dosage: TO LOWER BLOOD PRESSURE?FORM OF ADMIN:TPP YC - PLEASE RECLASSIFY
     Dates: start: 20240605
  8. COCODAMOL [Concomitant]
     Active Substance: ACETAMINOPHEN\CODEINE PHOSPHATE
     Indication: Ill-defined disorder
  9. POLYETHYLENE GLYCOL 3350\POTASSIUM CHLORIDE\SODIUM BICARBONATE\SODIUM [Concomitant]
     Active Substance: POLYETHYLENE GLYCOL 3350\POTASSIUM CHLORIDE\SODIUM BICARBONATE\SODIUM CHLORIDE
     Indication: Ill-defined disorder
  10. RAMIPRIL [Concomitant]
     Active Substance: RAMIPRIL
     Indication: Ill-defined disorder
     Dosage: FORM OF ADMIN:TPP YC - PLEASE RECLASSIFY
     Dates: start: 20241204
  11. FUROSEMIDE [Concomitant]
     Active Substance: FUROSEMIDE
     Indication: Ill-defined disorder
     Dosage: MORNING WATER TABLET?FORM OF ADMIN:TPP YC - PLEASE RECLASSIFY
     Dates: start: 20250204

REACTIONS (3)
  - Dizziness [Recovering/Resolving]
  - Nausea [Recovering/Resolving]
  - Malaise [Recovering/Resolving]

NARRATIVE: CASE EVENT DATE: 20250711
